FAERS Safety Report 8921366 (Version 2)
Quarter: 2013Q2

REPORT INFORMATION
  Report Type: Other
  Country: DE (occurrence: DE)
  Receive Date: 20121121
  Receipt Date: 20130503
  Transmission Date: 20140414
  Serious: Yes (Death)
  Sender: FDA-Public Use
  Company Number: DE-WATSON-2012-19623

PATIENT
  Age: 79 Year
  Sex: Female
  Weight: 52 kg

DRUGS (5)
  1. METFORMIN HYDROCHLORIDE (UNKNOWN) [Suspect]
     Indication: DIABETES MELLITUS
     Dosage: DAILY DOSE: 2000 MG MILLGRAM(S) EVERY DAYS, 1000MG MILLIGRAM(S) 2 1DAY
     Route: 048
  2. PRADAXA [Suspect]
     Indication: PERIPHERAL ARTERIAL OCCLUSIVE DISEASE
     Dosage: DAILY DOSE: 300 MG MILLGRAM(S) EVERY DAYS^ [ 4800 MG MILLIGRAM(S) { 150 MG MILLIGRAM(S), 2 IN 1 DAY
     Route: 048
     Dates: start: 20120820
  3. CLOPIDOGREL [Concomitant]
     Indication: PERIPHERAL ARTERIAL OCCLUSIVE DISEASE
     Dosage: DAILY DOSE: 75 MG MILLGRAM(S) EVERY DAYS, 75MG MILLIGRAM(S) 1 1DAY
     Route: 065
  4. OXYGESIC [Concomitant]
     Indication: ANALGESIC THERAPY
     Dosage: DAILY DOSE: 10MG MILLGRAM(S) EVERY DAYS, 20MG MILLIGRAM(S), 5MG MILLIGRAM(S) 2 1DAY
     Route: 065
     Dates: start: 20120903, end: 20120904
  5. NOVALGIN                           /06276704/ [Concomitant]
     Indication: ANALGESIC THERAPY
     Dosage: DAILY DOSE: 120 GTT DROP(S) EVERY DAYS, 360GTT DROP(S) 30GTT DROP(S) 4 1DAY
     Route: 065
     Dates: start: 20120902, end: 20120904

REACTIONS (5)
  - Resuscitation [Fatal]
  - Multi-organ failure [Fatal]
  - Hypotension [Fatal]
  - Lactic acidosis [Fatal]
  - Somnolence [Fatal]
